FAERS Safety Report 7804907-4 (Version None)
Quarter: 2011Q4

REPORT INFORMATION
  Report Type: 
  Country: None (occurrence: None)
  Receive Date: 20111010
  Receipt Date: 20111003
  Transmission Date: 20120403
  Serious: Yes (Hospitalization)
  Sender: FDA-Public Use
  Company Number: ZA-BRISTOL-MYERS SQUIBB COMPANY-16125874

PATIENT
  Age: 1 Year
  Sex: Female

DRUGS (8)
  1. COTRIM [Concomitant]
     Dates: start: 20100501
  2. ETHAMBUTOL HYDROCHLORIDE [Concomitant]
     Dates: start: 20110526
  3. PYRAZINAMIDE [Concomitant]
     Dates: start: 20110526
  4. EFAVIRENZ [Suspect]
     Indication: HIV INFECTION
     Route: 048
     Dates: start: 20100923
  5. RIFABUTIN [Concomitant]
     Dates: start: 20110526
  6. DIDANOSINE [Suspect]
     Indication: HIV INFECTION
     Route: 048
     Dates: start: 20100923
  7. EMTRICITABINE [Suspect]
     Indication: HIV INFECTION
     Route: 048
     Dates: start: 20100923
  8. ISONIAZID [Concomitant]
     Dates: start: 20110526

REACTIONS (2)
  - VIRAL UPPER RESPIRATORY TRACT INFECTION [None]
  - FEBRILE CONVULSION [None]
